FAERS Safety Report 9645732 (Version 2)
Quarter: 2013Q4

REPORT INFORMATION
  Report Type: Report from Study
  Country: JP (occurrence: JP)
  Receive Date: 20131025
  Receipt Date: 20131111
  Transmission Date: 20140711
  Serious: Yes (Death)
  Sender: FDA-Public Use
  Company Number: JP-JNJFOC-20131012241

PATIENT
  Age: 80 Year
  Sex: Female
  Weight: 34 kg

DRUGS (15)
  1. ONE DURO PATCH [Suspect]
     Indication: CANCER PAIN
     Route: 062
     Dates: start: 20121007, end: 20121115
  2. ONE DURO PATCH [Suspect]
     Indication: CANCER PAIN
     Route: 062
     Dates: start: 20120926, end: 20120928
  3. ONE DURO PATCH [Suspect]
     Indication: CANCER PAIN
     Route: 062
     Dates: start: 20120926, end: 20120928
  4. ONE DURO PATCH [Suspect]
     Indication: CANCER PAIN
     Route: 062
     Dates: start: 20120929, end: 20121006
  5. FENTANYL CITRATE [Concomitant]
     Indication: CANCER PAIN
     Route: 065
     Dates: start: 20121002, end: 20121003
  6. FENTANYL CITRATE [Concomitant]
     Indication: CANCER PAIN
     Route: 065
     Dates: start: 20121007, end: 20121007
  7. FENTANYL CITRATE [Concomitant]
     Indication: CANCER PAIN
     Route: 065
     Dates: start: 20121009, end: 20121009
  8. FENTANYL CITRATE [Concomitant]
     Indication: CANCER PAIN
     Route: 065
     Dates: start: 20120930, end: 20120930
  9. FENTANYL CITRATE [Concomitant]
     Indication: CANCER PAIN
     Route: 065
     Dates: start: 20120927, end: 20120927
  10. FENTANYL CITRATE [Concomitant]
     Indication: CANCER PAIN
     Route: 065
     Dates: start: 20120928, end: 20120928
  11. FENTANYL CITRATE [Concomitant]
     Indication: CANCER PAIN
     Route: 065
     Dates: start: 20120929, end: 20120929
  12. VESICARE [Concomitant]
     Indication: PROPHYLAXIS
     Route: 048
     Dates: start: 20120926, end: 20121114
  13. RELIFEN [Concomitant]
     Indication: CANCER PAIN
     Route: 048
     Dates: end: 20120929
  14. LYRICA [Concomitant]
     Indication: CANCER PAIN
     Route: 048
     Dates: end: 20120930
  15. MAGMITT [Concomitant]
     Indication: PROPHYLAXIS
     Route: 048
     Dates: start: 20121006, end: 20121114

REACTIONS (3)
  - Lung neoplasm malignant [Fatal]
  - Wrong technique in drug usage process [Unknown]
  - Constipation [Recovering/Resolving]
